FAERS Safety Report 13554825 (Version 1)
Quarter: 2017Q2

REPORT INFORMATION
  Report Type: Report from Study
  Country: JP (occurrence: JP)
  Receive Date: 20170517
  Receipt Date: 20170517
  Transmission Date: 20170830
  Serious: Yes (Other)
  Sender: FDA-Public Use
  Company Number: JP-TEVA-768568ROM

PATIENT
  Sex: Female

DRUGS (2)
  1. FLUOROURACIL. [Suspect]
     Active Substance: FLUOROURACIL
     Indication: CERVIX CARCINOMA
     Dosage: 700 MG/M2 PER DAY AS A 96-HOUR CONTINUOUS INFUSION ON DAY 1-4, CYCLIC
     Route: 041
  2. CISPLATIN. [Suspect]
     Active Substance: CISPLATIN
     Indication: CERVIX CARCINOMA
     Dosage: 70 MG/M2 IN A 2-HOUR INFUSION ON DAY 1, CYCLIC
     Route: 041

REACTIONS (1)
  - Gastrointestinal perforation [Unknown]
